FAERS Safety Report 4476960-X (Version None)
Quarter: 2004Q4

REPORT INFORMATION
  Report Type: 
  Country: None (occurrence: None)
  Receive Date: 20041018
  Receipt Date: 20041006
  Transmission Date: 20050328
  Serious: Yes (Other)
  Sender: FDA-Public Use
  Company Number: DE-JNJFOC-20040404707

PATIENT

DRUGS (7)
  1. REOPRO [Suspect]
     Dosage: 0.125 UG/KG/MIN FOR 12 HOURS
  2. REOPRO [Suspect]
     Indication: ACUTE MYOCARDIAL INFARCTION
  3. RETEVASE [Suspect]
     Indication: ACUTE MYOCARDIAL INFARCTION
  4. ASPIRIN [Concomitant]
  5. ASPIRIN [Concomitant]
  6. HEPARIN [Concomitant]
  7. CLOPIDOGREL [Concomitant]

REACTIONS (1)
  - MYOCARDIAL INFARCTION [None]
